FAERS Safety Report 10555660 (Version 2)
Quarter: 2015Q1

REPORT INFORMATION
  Report Type: Spontaneous
  Country: US (occurrence: US)
  Receive Date: 20141030
  Receipt Date: 20150202
  Transmission Date: 20150720
  Serious: No
  Sender: FDA-Public Use
  Company Number: US-TEVA-514758USA

PATIENT
  Sex: Female

DRUGS (2)
  1. COPAXONE [Suspect]
     Active Substance: GLATIRAMER ACETATE
     Indication: MULTIPLE SCLEROSIS
     Dates: start: 2004, end: 2006
  2. BETASERON [Suspect]
     Active Substance: INTERFERON BETA-1B
     Route: 065
     Dates: start: 2006

REACTIONS (3)
  - Adverse event [Recovered/Resolved]
  - Injection site reaction [Unknown]
  - Maternal exposure before pregnancy [Unknown]
